FAERS Safety Report 6983737-X (Version None)
Quarter: 2010Q3

REPORT INFORMATION
  Report Type: 
  Country: None (occurrence: None)
  Receive Date: 20100914
  Receipt Date: 20051125
  Transmission Date: 20110219
  Serious: Yes (Hospitalization)
  Sender: FDA-Public Use
  Company Number: US-WYE-H07147808

PATIENT
  Sex: Male

DRUGS (5)
  1. IBUPROFEN [Suspect]
     Indication: PAIN
     Dosage: UNKNOWN (ABOUT 9 TABLETS)
     Route: 048
  2. GINKGO BILOBA [Concomitant]
     Dosage: UNKNOWN
     Route: 048
  3. ST. JOHN'S WORT [Concomitant]
     Dosage: UNKNOWN
     Route: 048
  4. ULTRAM [Concomitant]
     Dosage: 4-6 TABLETS PER DAY
     Route: 048
  5. BENADRYL [Concomitant]
     Dosage: UNKNOWN
     Route: 048

REACTIONS (5)
  - BLOOD CREATININE INCREASED [None]
  - BLOOD UREA INCREASED [None]
  - DIZZINESS [None]
  - HAEMATEMESIS [None]
  - MELAENA [None]
